FAERS Safety Report 6831655-X (Version None)
Quarter: 2010Q3

REPORT INFORMATION
  Report Type: 
  Country: None (occurrence: None)
  Receive Date: 20100712
  Receipt Date: 20100705
  Transmission Date: 20110219
  Serious: Yes (Hospitalization)
  Sender: FDA-Public Use
  Company Number: AT-SANOFI-AVENTIS-2010SA038831

PATIENT
  Age: 84 Year
  Sex: Female

DRUGS (2)
  1. DRONEDARONE HCL [Suspect]
     Route: 048
     Dates: start: 20100301, end: 20100601
  2. ACETYLSALICYLIC ACID [Concomitant]
     Indication: PRODUCT USED FOR UNKNOWN INDICATION
     Route: 048
     Dates: start: 20100601

REACTIONS (1)
  - POST PROCEDURAL HAEMATOMA [None]
